FAERS Safety Report 7492518-2 (Version None)
Quarter: 2011Q2

REPORT INFORMATION
  Report Type: 
  Country: None (occurrence: None)
  Receive Date: 20110519
  Receipt Date: 20110517
  Transmission Date: 20111010
  Serious: Yes (Hospitalization, Other)
  Sender: FDA-Public Use
  Company Number: US-ABBOTT-10P-163-0629982-00

PATIENT
  Sex: Male
  Weight: 90.346 kg

DRUGS (2)
  1. HUMIRA [Suspect]
     Indication: PSORIASIS
     Dates: start: 20070101, end: 20090501
  2. HUMIRA [Suspect]
     Indication: ARTHRALGIA

REACTIONS (8)
  - DYSGEUSIA [None]
  - ARTHRALGIA [None]
  - MUSCULOSKELETAL DISORDER [None]
  - EPILEPTIC AURA [None]
  - PSORIASIS [None]
  - STRABISMUS [None]
  - GAIT DISTURBANCE [None]
  - GLIOMA [None]
